FAERS Safety Report 19127473 (Version 2)
Quarter: 2021Q3

REPORT INFORMATION
  Report Type: Spontaneous
  Country: GB (occurrence: GB)
  Receive Date: 20210413
  Receipt Date: 20210721
  Transmission Date: 20211014
  Serious: Yes (Other)
  Sender: FDA-Public Use
  Company Number: NVSC2021GB053783

PATIENT
  Age: 71 Year
  Sex: Female

DRUGS (4)
  1. BENEPALI [Suspect]
     Active Substance: ETANERCEPT
     Indication: RHEUMATOID ARTHRITIS
     Dosage: 50 MG, QW
     Route: 058
  2. ADALIMUMAB [Suspect]
     Active Substance: ADALIMUMAB
     Indication: PRODUCT USED FOR UNKNOWN INDICATION
     Dosage: UNK
     Route: 065
  3. BENEPALI [Suspect]
     Active Substance: ETANERCEPT
     Route: 058
  4. ADALIMUMAB [Suspect]
     Active Substance: ADALIMUMAB
     Dosage: UNKNOWN
     Route: 065

REACTIONS (8)
  - Injection site pain [Unknown]
  - Joint swelling [Unknown]
  - Gait disturbance [Unknown]
  - Insomnia [Unknown]
  - Decreased appetite [Unknown]
  - Ill-defined disorder [Unknown]
  - Malaise [Unknown]
  - Scleritis [Unknown]
